FAERS Safety Report 10677899 (Version 8)
Quarter: 2017Q1

REPORT INFORMATION
  Report Type: Spontaneous
  Country: JP (occurrence: JP)
  Receive Date: 20141229
  Receipt Date: 20170216
  Transmission Date: 20170428
  Serious: Yes (Other)
  Sender: FDA-Public Use
  Company Number: JP-ORION CORPORATION ORION PHARMA-ENT 2014-0248

PATIENT
  Age: 80 Year
  Sex: Female
  Weight: 43.5 kg

DRUGS (21)
  1. COMTAN [Interacting]
     Active Substance: ENTACAPONE
     Route: 048
     Dates: start: 20130903
  2. LENDORMIN [Concomitant]
     Active Substance: BROTIZOLAM
     Route: 065
     Dates: start: 20120604
  3. COMTAN [Interacting]
     Active Substance: ENTACAPONE
     Route: 048
     Dates: start: 20131211
  4. MEMARY [Concomitant]
     Active Substance: MEMANTINE HYDROCHLORIDE
     Route: 065
     Dates: start: 20120720
  5. RIVOTRIL [Concomitant]
     Active Substance: CLONAZEPAM
     Route: 065
     Dates: start: 20120604
  6. DEPAS [Concomitant]
     Active Substance: ETIZOLAM
     Route: 065
     Dates: start: 20120604
  7. COMTAN [Interacting]
     Active Substance: ENTACAPONE
     Route: 048
     Dates: start: 20120725
  8. MENESIT [Interacting]
     Active Substance: CARBIDOPA\LEVODOPA
     Route: 048
     Dates: start: 20120703
  9. METLIGINE [Suspect]
     Active Substance: MIDODRINE HYDROCHLORIDE
     Indication: ORTHOSTATIC HYPOTENSION
     Route: 048
     Dates: start: 20120626, end: 20121205
  10. MIRAPEX [Concomitant]
     Active Substance: PRAMIPEXOLE DIHYDROCHLORIDE
     Route: 065
     Dates: start: 201206
  11. COMTAN [Interacting]
     Active Substance: ENTACAPONE
     Route: 048
     Dates: start: 20120718
  12. COMTAN [Interacting]
     Active Substance: ENTACAPONE
     Route: 048
     Dates: start: 20140108
  13. COMTAN [Interacting]
     Active Substance: ENTACAPONE
     Route: 048
     Dates: start: 20140319
  14. COMTAN [Interacting]
     Active Substance: ENTACAPONE
     Route: 048
     Dates: start: 20130522
  15. MENESIT [Interacting]
     Active Substance: CARBIDOPA\LEVODOPA
     Indication: PARKINSON^S DISEASE
     Route: 048
     Dates: start: 20120607
  16. MENESIT [Interacting]
     Active Substance: CARBIDOPA\LEVODOPA
     Route: 048
     Dates: start: 20130522
  17. MENESIT [Interacting]
     Active Substance: CARBIDOPA\LEVODOPA
     Route: 048
     Dates: start: 20130903
  18. COMTAN [Suspect]
     Active Substance: ENTACAPONE
     Indication: PARKINSON^S DISEASE
     Route: 048
     Dates: start: 20120607
  19. FP [Interacting]
     Active Substance: SELEGILINE HYDROCHLORIDE
     Indication: PARKINSON^S DISEASE
     Route: 048
     Dates: start: 20120607
  20. FP [Interacting]
     Active Substance: SELEGILINE HYDROCHLORIDE
     Route: 048
     Dates: start: 20131230, end: 20140205
  21. MUCOSTA [Concomitant]
     Active Substance: REBAMIPIDE
     Route: 065
     Dates: start: 20120604

REACTIONS (6)
  - Drug interaction [Unknown]
  - Orthostatic hypotension [Unknown]
  - Blood pressure fluctuation [Unknown]
  - Hypertension [Recovering/Resolving]
  - Neurotransmitter level altered [Recovering/Resolving]
  - Norepinephrine increased [Recovering/Resolving]

NARRATIVE: CASE EVENT DATE: 201210
